FAERS Safety Report 13396490 (Version 4)
Quarter: 2017Q3

REPORT INFORMATION
  Report Type: Spontaneous
  Country: US (occurrence: US)
  Receive Date: 20170403
  Receipt Date: 20170927
  Transmission Date: 20171127
  Serious: No
  Sender: FDA-Public Use
  Company Number: US-LUNDBECK-DKLU2027594

PATIENT
  Age: 28 Year
  Sex: Female

DRUGS (6)
  1. ZOFRAN [Concomitant]
     Active Substance: ONDANSETRON HYDROCHLORIDE
     Indication: PRODUCT USED FOR UNKNOWN INDICATION
     Route: 065
  2. NORTHERA [Suspect]
     Active Substance: DROXIDOPA
     Route: 048
     Dates: start: 20170512
  3. NORTHERA [Suspect]
     Active Substance: DROXIDOPA
     Indication: POSTURAL ORTHOSTATIC TACHYCARDIA SYNDROME
     Dosage: SCHEDULE B; TITRATING
     Route: 065
     Dates: start: 20170303
  4. SODIUM BICAR TAB [Concomitant]
     Indication: PRODUCT USED FOR UNKNOWN INDICATION
     Route: 065
  5. NORTHERA [Suspect]
     Active Substance: DROXIDOPA
     Dosage: TITRATION COMPLETE
     Route: 065
  6. MESTINON [Concomitant]
     Active Substance: PYRIDOSTIGMINE BROMIDE
     Indication: PRODUCT USED FOR UNKNOWN INDICATION
     Route: 065

REACTIONS (29)
  - Gait disturbance [Unknown]
  - Off label use [Unknown]
  - Palpitations [Unknown]
  - Abdominal distension [Unknown]
  - Pyrexia [Unknown]
  - Dyspnoea [Unknown]
  - Blood pressure increased [Unknown]
  - Dyspnoea exertional [Unknown]
  - Chest discomfort [Unknown]
  - Drug ineffective [Unknown]
  - Early satiety [Unknown]
  - Pain [Unknown]
  - Weight decreased [Unknown]
  - Fatigue [Unknown]
  - Dry eye [Unknown]
  - Dry mouth [Unknown]
  - Hyperhidrosis [Unknown]
  - Depression [Unknown]
  - Blood pressure decreased [Unknown]
  - Condition aggravated [Unknown]
  - Urinary tract infection [Unknown]
  - Vision blurred [Unknown]
  - Limb discomfort [Unknown]
  - Constipation [Unknown]
  - Loss of libido [Unknown]
  - Temperature intolerance [Unknown]
  - Night sweats [Unknown]
  - Vomiting [Unknown]
  - Diarrhoea [Unknown]

NARRATIVE: CASE EVENT DATE: 20170307
